FAERS Safety Report 5895185-4 (Version None)
Quarter: 2008Q3

REPORT INFORMATION
  Report Type: 
  Country: None (occurrence: None)
  Receive Date: 20080924
  Receipt Date: 20080918
  Transmission Date: 20090109
  Serious: Yes (Death)
  Sender: FDA-Public Use
  Company Number: CZ-PFIZER INC-2008078997

PATIENT
  Sex: Female
  Weight: 55 kg

DRUGS (11)
  1. CAMPTOSAR [Suspect]
     Indication: COLORECTAL CANCER
     Dosage: DAILY DOSE:174MG
     Route: 042
     Dates: start: 20080403
  2. BLINDED SU11248 (SU011248) [Suspect]
     Indication: COLORECTAL CANCER
     Route: 048
     Dates: start: 20080403
  3. FLUOROURACIL [Suspect]
     Indication: COLORECTAL CANCER
     Dosage: DAILY DOSE:388MG-FREQ:LOADING, EVERY 2 WEEKS
     Route: 042
     Dates: start: 20080403
  4. FLUOROURACIL [Suspect]
     Dosage: DAILY DOSE:2331MG-FREQ:INFUSION, EVERY 2 WEEKS
     Route: 042
     Dates: start: 20080403
  5. CALCIUM FOLINATE [Suspect]
     Indication: COLORECTAL CANCER
     Dosage: DAILY DOSE:388MG
     Route: 042
     Dates: start: 20080403
  6. LOKREN [Concomitant]
     Indication: HYPERTENSION
     Dosage: DAILY DOSE:20MG
     Dates: start: 20020101
  7. ATORVASTATIN CALCIUM [Concomitant]
     Indication: HYPERCHOLESTEROLAEMIA
     Dosage: DAILY DOSE:20MG
     Dates: start: 20020101
  8. GLUCOPHAGE [Concomitant]
     Indication: DIABETES MELLITUS
     Dosage: DAILY DOSE:850MG
     Dates: start: 19980101
  9. AKTIFERRIN COMPOSITUM [Concomitant]
     Indication: MINERAL SUPPLEMENTATION
     Dates: start: 20080319
  10. MEGACE [Concomitant]
     Indication: ANOREXIA
     Dosage: DAILY DOSE:10ML
     Dates: start: 20080618
  11. POTASSIUM CHLORIDE [Concomitant]
     Indication: HYPOKALAEMIA
     Dosage: DAILY DOSE:500MG
     Dates: start: 20080430

REACTIONS (1)
  - DEATH [None]
